FAERS Safety Report 6099413-4 (Version None)
Quarter: 2009Q1

REPORT INFORMATION
  Report Type: 
  Country: None (occurrence: None)
  Receive Date: 20090303
  Receipt Date: 20090223
  Transmission Date: 20090719
  Serious: Yes (Disabling)
  Sender: FDA-Public Use
  Company Number: FR-ASTRAZENECA-2009CG00429

PATIENT
  Age: 21187 Day
  Sex: Male

DRUGS (4)
  1. LIDOCAINE [Suspect]
     Dates: start: 20090106, end: 20090106
  2. DIPRIVAN [Suspect]
     Route: 042
     Dates: start: 20090106, end: 20090106
  3. CELOCURIN [Suspect]
     Route: 042
     Dates: start: 20090106, end: 20090106
  4. CORDARONE [Concomitant]

REACTIONS (2)
  - BRONCHOSPASM [None]
  - CIRCULATORY COLLAPSE [None]
